FAERS Safety Report 6122880-4 (Version None)
Quarter: 2009Q1

REPORT INFORMATION
  Report Type: 
  Country: None (occurrence: None)
  Receive Date: 20090318
  Receipt Date: 20080812
  Transmission Date: 20090719
  Serious: No
  Sender: FDA-Public Use
  Company Number: US-AMGEN-KDL301050

PATIENT

DRUGS (3)
  1. NEULASTA [Suspect]
     Indication: DRUG USE FOR UNKNOWN INDICATION
  2. IFOSFAMIDE [Concomitant]
  3. CISPLATIN [Concomitant]

REACTIONS (3)
  - BONE PAIN [None]
  - DIZZINESS [None]
  - PYREXIA [None]
